FAERS Safety Report 9091271 (Version 2)
Quarter: 2013Q1

REPORT INFORMATION
  Report Type: Spontaneous
  Country: US (occurrence: US)
  Receive Date: 20130131
  Receipt Date: 20130329
  Transmission Date: 20140127
  Serious: Yes (Life-Threatening)
  Sender: FDA-Public Use
  Company Number: US-009507513-1301USA011724

PATIENT
  Age: 32 Year
  Sex: Male

DRUGS (1)
  1. ZOCOR [Suspect]
     Route: 048

REACTIONS (1)
  - Anaphylactic reaction [Unknown]
